FAERS Safety Report 5089938-2 (Version None)
Quarter: 2006Q3

REPORT INFORMATION
  Report Type: 
  Country: None (occurrence: None)
  Receive Date: 20060823
  Receipt Date: 20060807
  Transmission Date: 20061208
  Serious: Yes (Hospitalization, Other)
  Sender: FDA-Public Use
  Company Number: TRP_0846_2006

PATIENT
  Age: 46 Year
  Sex: Male

DRUGS (5)
  1. RIBASPHERE [Suspect]
     Indication: HEPATITIS C
     Dosage: DF PO
     Route: 048
     Dates: start: 20060526
  2. PEG-INTRON [Suspect]
     Indication: HEPATITIS C
     Dosage: DF QWK SC
     Route: 058
     Dates: start: 20060526
  3. BENICAR [Concomitant]
  4. EFFEXOR XR [Concomitant]
  5. MULTIVITAMIN [Concomitant]

REACTIONS (2)
  - ABDOMINAL PAIN [None]
  - CHOLECYSTECTOMY [None]
